FAERS Safety Report 5305820-7 (Version None)
Quarter: 2007Q2

REPORT INFORMATION
  Report Type: 
  Country: None (occurrence: None)
  Receive Date: 20070424
  Receipt Date: 20070411
  Transmission Date: 20071010
  Serious: No
  Sender: FDA-Public Use
  Company Number: US-ELI_LILLY_AND_COMPANY-US200703004038

PATIENT
  Age: 72 Year
  Sex: Male
  Weight: 75.056 kg

DRUGS (13)
  1. FORTEO [Suspect]
     Indication: OSTEOPOROSIS
     Dosage: 20 UG, UNK
     Dates: start: 20050501, end: 20070228
  2. FORTEO [Suspect]
     Dosage: 20 UG, UNK
     Dates: start: 20070301, end: 20070101
  3. ACTONEL [Concomitant]
     Dates: end: 20060101
  4. CALCIUM [Concomitant]
     Dates: end: 20070228
  5. LIPITOR [Concomitant]
     Dates: end: 20070228
  6. TRIAMTERENE AND HYDROCHLOROTHIAZIDE [Concomitant]
  7. NEXIUM [Concomitant]
     Indication: GASTRIC DISORDER
  8. FLONASE [Concomitant]
  9. FLAXSEED OIL [Concomitant]
  10. ASPIRIN [Concomitant]
  11. VITAMINS [Concomitant]
  12. LEVOXYL [Concomitant]
  13. METOPROLOL SUCCINATE [Concomitant]

REACTIONS (7)
  - ABDOMINAL PAIN UPPER [None]
  - DIARRHOEA [None]
  - DYSPEPSIA [None]
  - HEADACHE [None]
  - NAUSEA [None]
  - STOMACH DISCOMFORT [None]
  - VOMITING [None]
